FAERS Safety Report 16072625 (Version 1)
Quarter: 2019Q2

REPORT INFORMATION
  Report Type: Spontaneous
  Country: US (occurrence: US)
  Receive Date: 20190314
  Receipt Date: 20190314
  Transmission Date: 20190711
  Serious: Yes (Life-Threatening)
  Sender: FDA-Public Use
  Company Number: None

PATIENT
  Age: 62 Year
  Sex: Female
  Weight: 75.2 kg

DRUGS (2)
  1. RANEXA [Suspect]
     Active Substance: RANOLAZINE
     Indication: ANGINA PECTORIS
     Route: 048
     Dates: start: 20190221, end: 20190222
  2. METOPROLOL. [Concomitant]
     Active Substance: METOPROLOL
     Dates: start: 20190221, end: 20190227

REACTIONS (4)
  - Hypotension [None]
  - Unresponsive to stimuli [None]
  - Bradycardia [None]
  - Electrocardiogram QRS complex prolonged [None]

NARRATIVE: CASE EVENT DATE: 20190221
